FAERS Safety Report 5846102-4 (Version None)
Quarter: 2008Q3

REPORT INFORMATION
  Report Type: 
  Country: None (occurrence: None)
  Receive Date: 20080813
  Receipt Date: 20080806
  Transmission Date: 20090109
  Serious: Yes (Death)
  Sender: FDA-Public Use
  Company Number: 2008US000976

PATIENT
  Age: 60 Year
  Sex: Female
  Weight: 55.3 kg

DRUGS (43)
  1. PROGRAF [Suspect]
     Indication: LUNG TRANSPLANT
     Dosage: 3 MG, BID, 1 MG, BID, 2 MG, BID, ORAL
     Route: 048
     Dates: start: 20070815, end: 20080402
  2. PROGRAF [Suspect]
     Indication: LUNG TRANSPLANT
     Dosage: 3 MG, BID, 1 MG, BID, 2 MG, BID, ORAL
     Route: 048
     Dates: start: 20070815, end: 20080402
  3. PROGRAF [Suspect]
     Indication: LUNG TRANSPLANT
     Dosage: 3 MG, BID, 1 MG, BID, 2 MG, BID, ORAL
     Route: 048
     Dates: start: 20070815, end: 20080402
  4. CELLCEPT [Concomitant]
  5. PREDNISONE [Concomitant]
  6. NEXIUM [Concomitant]
  7. CALCIUM + VIT D (COLECALCIFEROL, CALCIUM) [Concomitant]
  8. NYSTATIN [Concomitant]
  9. COREG [Concomitant]
  10. MIRAPEX [Concomitant]
  11. L-THYOXINE (LEVOTHYROXINE) [Concomitant]
  12. CALCITRIOL [Concomitant]
  13. TRAZODONE HCL [Concomitant]
  14. VALSARTAN [Concomitant]
  15. GLIPIZIDE [Concomitant]
  16. POTASSIUM (POTASSIUM) [Concomitant]
  17. LASIX [Concomitant]
  18. MAGNESIUM (MAGNESIUM CARBONATE) [Concomitant]
  19. ESOMEPRAZOLE MAGNESIUM [Concomitant]
  20. IRON (IRON) [Concomitant]
  21. HYDROCODONE (HYDROCODONE) [Concomitant]
  22. INSULIN (INSULIN) [Concomitant]
  23. PRAVACHOL [Concomitant]
  24. TMP-SMX (SULFAMETHOXAZOLEM TRIMETHOPRIM) [Concomitant]
  25. CITRACAL + D (ERGOCALCIFEROL, CALCIUM CITRATE) [Concomitant]
  26. FOSAMAX PLUS D [Concomitant]
  27. NIFEREX [Concomitant]
  28. DIOVAN [Concomitant]
  29. SYNTHROID [Concomitant]
  30. NORCO (HYDROCODONE BITARTRATE) [Concomitant]
  31. SENOKOT (SENNOSIDE B) [Concomitant]
  32. RAPAMUNE [Concomitant]
  33. SEROQUEL [Concomitant]
  34. POTASSIUM CHLORIDE [Concomitant]
  35. GLUCOTROL [Concomitant]
  36. PROCRIT [Concomitant]
  37. NOVOLOG [Concomitant]
  38. AMIODARONE HCL [Concomitant]
  39. LANTUS [Concomitant]
  40. JANUVIA (SITAGLIPTIN PHOSPHATE) [Concomitant]
  41. ARANESP [Concomitant]
  42. VALCYTE [Concomitant]
  43. VFEND (FORICONAZOLE) [Concomitant]

REACTIONS (12)
  - ACUTE MYOCARDIAL INFARCTION [None]
  - ANOXIC ENCEPHALOPATHY [None]
  - BRAIN INJURY [None]
  - BRAIN OEDEMA [None]
  - CARDIAC ARREST [None]
  - CARDIAC FAILURE [None]
  - CEREBRAL CALCIFICATION [None]
  - CHEST PAIN [None]
  - DIASTOLIC DYSFUNCTION [None]
  - MITRAL VALVE INCOMPETENCE [None]
  - PULMONARY OEDEMA [None]
  - SUPRAVENTRICULAR TACHYCARDIA [None]
